FAERS Safety Report 8292226 (Version 7)
Quarter: 2013Q2

REPORT INFORMATION
  Report Type: Spontaneous
  Country: US (occurrence: US)
  Receive Date: 20111215
  Receipt Date: 20130509
  Transmission Date: 20140414
  Serious: Yes (Life-Threatening, Hospitalization, Congenital Anomaly, Other)
  Sender: FDA-Public Use
  Company Number: US-PFIZER INC-2011303265

PATIENT
  Sex: Male
  Weight: 3.2 kg

DRUGS (21)
  1. ZOLOFT [Suspect]
     Indication: POSTPARTUM DEPRESSION
     Dosage: UNK
     Route: 064
  2. ZOLOFT [Suspect]
     Indication: DEPRESSION
     Dosage: STARTER PACK, UNK
     Route: 064
     Dates: start: 200206, end: 200212
  3. ZOLOFT [Suspect]
     Indication: ANXIETY
     Dosage: 50 MG, UNK
     Route: 064
     Dates: start: 20021009
  4. ZOLOFT [Suspect]
     Dosage: 50MG TO 200MG PER DAY
     Route: 064
     Dates: start: 200212, end: 200501
  5. ZOLOFT [Suspect]
     Dosage: 75 MG, UNK
     Route: 064
  6. ZOLOFT [Suspect]
     Dosage: 200 MG, 1X/DAY
     Route: 064
     Dates: start: 20030804
  7. ZOLOFT [Suspect]
     Dosage: 100 MG, 2X/DAY
     Route: 064
     Dates: start: 20040217, end: 200607
  8. PULMICORT [Concomitant]
     Dosage: UNK
     Route: 064
     Dates: start: 20050706
  9. PULMICORT [Concomitant]
     Dosage: 200 UG, UNK
     Route: 064
     Dates: start: 20060104
  10. ALBUTEROL [Concomitant]
     Dosage: AS NEEDED
     Route: 064
     Dates: start: 20050706
  11. ALBUTEROL [Concomitant]
     Dosage: 90 UG, UNK
     Route: 064
     Dates: start: 20051114
  12. NASONEX [Concomitant]
     Dosage: 50 UG, UNK
     Route: 064
     Dates: start: 20050602
  13. LEVOXYL [Concomitant]
     Dosage: 0.075 MG
     Route: 064
     Dates: start: 20050706
  14. ASTELIN [Concomitant]
     Dosage: AS NEEDED
     Route: 064
     Dates: start: 20050706
  15. ZITHROMAX Z-PACK [Concomitant]
     Dosage: 250 MG, UNK
     Route: 064
     Dates: start: 20050725
  16. AMOXICILLIN [Concomitant]
     Dosage: 500 MG, UNK
     Route: 064
     Dates: start: 20050818
  17. OXYCODONE W/APAP [Concomitant]
     Dosage: UNK
     Route: 064
     Dates: start: 20060215
  18. LEVOTHYROXINE [Concomitant]
     Dosage: 75 UG, UNK
     Route: 064
     Dates: start: 20050511
  19. INATAL ULTRA [Concomitant]
     Dosage: UNK
     Route: 064
     Dates: start: 20050718
  20. VINATE GT [Concomitant]
     Dosage: UNK
     Route: 064
     Dates: start: 20050815
  21. PRENATAL VITAMINS [Concomitant]
     Dosage: UNK
     Route: 064

REACTIONS (19)
  - Foetal exposure during pregnancy [Unknown]
  - Ventricular septal defect [Unknown]
  - Atrioventricular septal defect [Unknown]
  - Hypoplastic left heart syndrome [Unknown]
  - Anomalous pulmonary venous connection [Unknown]
  - Aortic stenosis [Unknown]
  - Pulmonary valve stenosis [Unknown]
  - Coarctation of the aorta [Unknown]
  - Atrial septal defect [Unknown]
  - Vein disorder [Unknown]
  - Persistent left superior vena cava [Unknown]
  - Heterotaxia [Unknown]
  - Congenital heart valve disorder [Unknown]
  - Aorta hypoplasia [Unknown]
  - Ascites [Unknown]
  - Double outlet right ventricle [Unknown]
  - Asplenia [Unknown]
  - Bradycardia [Unknown]
  - Premature baby [Unknown]
